FAERS Safety Report 5108788-1 (Version None)
Quarter: 2006Q3

REPORT INFORMATION
  Report Type: 
  Country: None (occurrence: None)
  Receive Date: 20060920
  Receipt Date: 20060905
  Transmission Date: 20061208
  Serious: Yes (Hospitalization)
  Sender: FDA-Public Use
  Company Number: FR-BRISTOL-MYERS SQUIBB COMPANY-13509997

PATIENT
  Age: 77 Year
  Sex: Female

DRUGS (7)
  1. METFORMIN HYDROCHLORIDE [Suspect]
     Route: 048
  2. ZOLPIDEM TARTRATE [Suspect]
     Route: 048
     Dates: start: 20060715
  3. EFFEXOR [Suspect]
     Indication: SPEECH DISORDER
     Route: 048
     Dates: start: 20060715, end: 20060731
  4. CO-TAREG [Suspect]
     Indication: HYPERTENSION
     Route: 048
  5. LIPANOR [Suspect]
     Route: 048
  6. ZYPREXA [Suspect]
     Dates: start: 20060803
  7. DEROXAT [Suspect]

REACTIONS (1)
  - DELIRIUM [None]
